FAERS Safety Report 21763510 (Version 1)
Quarter: 2022Q4

REPORT INFORMATION
  Report Type: Other
  Country: CN (occurrence: None)
  Receive Date: 20221221
  Receipt Date: 20221221
  Transmission Date: 20230113
  Serious: Yes (Hospitalization)
  Sender: FDA-Public Use
  Company Number: CN-ROCHE-3247032

PATIENT
  Age: 66 Year
  Sex: Female

DRUGS (7)
  1. BEVACIZUMAB [Suspect]
     Active Substance: BEVACIZUMAB
     Indication: Sarcomatoid carcinoma
     Dosage: DAY 1
     Route: 065
     Dates: start: 20210719
  2. PACLITAXEL [Suspect]
     Active Substance: PACLITAXEL
     Indication: Sarcomatoid carcinoma
     Dosage: ON DAY 1, D8, D15
     Route: 065
     Dates: start: 20210719
  3. CARBOPLATIN [Suspect]
     Active Substance: CARBOPLATIN
     Indication: Sarcomatoid carcinoma
     Dosage: DAY 1
     Route: 065
     Dates: start: 20210719
  4. MOXIFLOXACIN [Concomitant]
     Active Substance: MOXIFLOXACIN
     Indication: Pneumonia
  5. LINEZOLID [Concomitant]
     Active Substance: LINEZOLID
  6. METHYLPREDNISOLONE [Concomitant]
     Active Substance: METHYLPREDNISOLONE
     Dates: end: 20220430
  7. CATEQUENTINIB [Concomitant]
     Active Substance: CATEQUENTINIB

REACTIONS (1)
  - Disease progression [Recovered/Resolved]
